FAERS Safety Report 6992616-3 (Version None)
Quarter: 2010Q3

REPORT INFORMATION
  Report Type: 
  Country: None (occurrence: None)
  Receive Date: 20100917
  Receipt Date: 20100913
  Transmission Date: 20110219
  Serious: Yes (Life-Threatening, Other)
  Sender: FDA-Public Use
  Company Number: JP-SHIRE-SPV1-2010-01589

PATIENT
  Age: 85 Year
  Sex: Female

DRUGS (1)
  1. FOSRENOL [Suspect]
     Indication: HYPERPHOSPHATAEMIA
     Dosage: UNK, TOTAL DAILY DOSE OF 1500 MG
     Route: 048
     Dates: start: 20100219, end: 20100831

REACTIONS (3)
  - DIVERTICULAR PERFORATION [None]
  - PERITONITIS [None]
  - SEPSIS [None]
